FAERS Safety Report 24774900 (Version 2)
Quarter: 2024Q4

REPORT INFORMATION
  Report Type: Report from Study
  Country: US (occurrence: US)
  Receive Date: 20241226
  Receipt Date: 20241231
  Transmission Date: 20250114
  Serious: Yes (Death, Hospitalization, Other)
  Sender: BIOCON
  Company Number: US-MIMS-BCONMC-9942

PATIENT

DRUGS (7)
  1. FULPHILA [Suspect]
     Active Substance: PEGFILGRASTIM-JMDB
     Indication: Neutropenia
     Dosage: 6 MILLIGRAM, ONE DOSE, DAY 2 EVERY 21 DAYS
     Route: 058
     Dates: start: 20241119, end: 20241119
  2. ZEPZELCA [Suspect]
     Active Substance: LURBINECTEDIN
     Indication: Small cell lung cancer
     Dosage: UNK
     Route: 065
     Dates: start: 20241118
  3. ZEPZELCA [Suspect]
     Active Substance: LURBINECTEDIN
     Dosage: 6 MG, EVERY 21 DAYS
     Route: 065
     Dates: start: 202409, end: 202411
  4. MORPHINE SULFATE [Concomitant]
     Active Substance: MORPHINE SULFATE
     Indication: Product used for unknown indication
     Route: 065
  5. GABAPENTIN [Concomitant]
     Active Substance: GABAPENTIN
     Indication: Product used for unknown indication
     Route: 065
  6. SPIRONOLACTONE [Concomitant]
     Active Substance: SPIRONOLACTONE
     Indication: Product used for unknown indication
     Route: 065
  7. ISTURISA [Concomitant]
     Active Substance: OSILODROSTAT PHOSPHATE
     Indication: Product used for unknown indication
     Dosage: UNK
     Route: 065

REACTIONS (3)
  - Disease progression [Fatal]
  - Sepsis [Fatal]
  - Device defective [Unknown]

NARRATIVE: CASE EVENT DATE: 20241210
